FAERS Safety Report 25681246 (Version 1)
Quarter: 2025Q3

REPORT INFORMATION
  Report Type: Spontaneous
  Country: US (occurrence: None)
  Receive Date: 20250813
  Receipt Date: 20250813
  Transmission Date: 20251021
  Serious: Yes (Other)
  Sender: FDA-CTU
  Company Number: None

PATIENT
  Age: 47 Year
  Sex: Male
  Weight: 109.35 kg

DRUGS (2)
  1. CABOTEGRAVIR [Suspect]
     Active Substance: CABOTEGRAVIR
     Indication: Prophylaxis against HIV infection
     Route: 030
     Dates: start: 20230807
  2. Apretude (Cabotegravir 200mg/mL solution) [Concomitant]
     Dates: start: 20230807

REACTIONS (3)
  - Injection site abscess [None]
  - Abscess limb [None]
  - Cellulitis staphylococcal [None]

NARRATIVE: CASE EVENT DATE: 20250813
